FAERS Safety Report 4894586-0 (Version None)
Quarter: 2006Q1

REPORT INFORMATION
  Report Type: 
  Country: None (occurrence: None)
  Receive Date: 20060127
  Receipt Date: 20060123
  Transmission Date: 20060701
  Serious: Yes (Hospitalization)
  Sender: FDA-Public Use
  Company Number: US-MERCK-0601USA02743

PATIENT
  Sex: Female
  Weight: 73 kg

DRUGS (11)
  1. VIOXX [Suspect]
     Indication: ARTHRITIS
     Route: 048
     Dates: start: 20031118, end: 20031217
  2. VIOXX [Suspect]
     Route: 048
     Dates: start: 20040510, end: 20040920
  3. MOBIC [Concomitant]
     Route: 065
  4. NEURONTIN [Concomitant]
     Route: 065
  5. [THERAPY UNSPECIFIED] [Concomitant]
     Route: 065
  6. ESTRATEST [Concomitant]
     Route: 065
  7. ZYRTEC [Concomitant]
     Route: 065
  8. ARTHROTEC [Concomitant]
     Route: 065
  9. WELLBUTRIN SR [Concomitant]
     Route: 065
  10. [THERAPY UNSPECIFIED] [Concomitant]
     Route: 065
  11. RESTORIL [Concomitant]
     Route: 065

REACTIONS (2)
  - CEREBROVASCULAR ACCIDENT [None]
  - DYSPNOEA [None]
